FAERS Safety Report 14369736 (Version 1)
Quarter: 2018Q1

REPORT INFORMATION
  Report Type: Report from Study
  Country: US (occurrence: US)
  Receive Date: 20180110
  Receipt Date: 20180110
  Transmission Date: 20180509
  Serious: Yes (Other)
  Sender: FDA-Public Use
  Company Number: US-ROCHE-2050778

PATIENT

DRUGS (2)
  1. CARMUSTINE [Suspect]
     Active Substance: CARMUSTINE
     Indication: GLIOMA
     Route: 065
  2. BEVACIZUMAB. [Suspect]
     Active Substance: BEVACIZUMAB
     Indication: GLIOMA
     Route: 065

REACTIONS (6)
  - Thrombocytopenia [Unknown]
  - Hepatotoxicity [Unknown]
  - Lymphopenia [Unknown]
  - Neutropenia [Unknown]
  - Leukopenia [Unknown]
  - Anaemia [Unknown]
